FAERS Safety Report 24396642 (Version 1)
Quarter: 2024Q4

REPORT INFORMATION
  Report Type: Report from Study
  Country: US (occurrence: US)
  Receive Date: 20241004
  Receipt Date: 20241004
  Transmission Date: 20250115
  Serious: Yes (Other)
  Sender: ROCHE
  Company Number: US-ROCHE-10000090768

PATIENT
  Age: 79 Year
  Sex: Female

DRUGS (1)
  1. OCREVUS [Suspect]
     Active Substance: OCRELIZUMAB
     Indication: Multiple sclerosis
     Dosage: 300 MG SINGLE-USE VIAL
     Route: 065
     Dates: end: 20201010

REACTIONS (32)
  - Migraine [Unknown]
  - Hemiparesis [Unknown]
  - Peroneal nerve palsy [Unknown]
  - Paraesthesia [Unknown]
  - Sensory loss [Unknown]
  - Fatigue [Unknown]
  - Immunosuppression [Unknown]
  - Fibromyalgia [Unknown]
  - Pain [Unknown]
  - Pain [Unknown]
  - Metabolic acidosis [Unknown]
  - Obesity [Unknown]
  - Dementia [Unknown]
  - Hyperlipidaemia [Unknown]
  - Hypothyroidism [Unknown]
  - Metabolic encephalopathy [Unknown]
  - Paraesthesia [Unknown]
  - Peroneal nerve palsy [Unknown]
  - Systemic inflammatory response syndrome [Unknown]
  - Urinary tract infection [Unknown]
  - Confusional state [Unknown]
  - Disorientation [Unknown]
  - Gait disturbance [Unknown]
  - Muscle spasticity [Unknown]
  - Hypoaesthesia [Unknown]
  - Paraesthesia [Unknown]
  - Diarrhoea [Unknown]
  - Memory impairment [Unknown]
  - Disturbance in attention [Unknown]
  - Hypoaesthesia [Unknown]
  - Cognitive disorder [Unknown]
  - Immunosuppression [Unknown]
